FAERS Safety Report 9827380 (Version 2)
Quarter: 2014Q1

REPORT INFORMATION
  Report Type: Spontaneous
  Country: PT (occurrence: PT)
  Receive Date: 20140117
  Receipt Date: 20140130
  Transmission Date: 20141002
  Serious: Yes (Hospitalization)
  Sender: FDA-Public Use
  Company Number: PT-B.I. PHARMACEUTICALS,INC./RIDGEFIELD-2014-BI-02090PO

PATIENT
  Age: 73 Year
  Sex: Female

DRUGS (3)
  1. PRADAXA [Suspect]
     Dosage: 220 MG
  2. STATIN [Concomitant]
  3. CALCIUM CHANNEL ANTAGONIST [Concomitant]

REACTIONS (1)
  - Ischaemic stroke [Recovered/Resolved with Sequelae]
